FAERS Safety Report 10052656 (Version 1)
Quarter: 2014Q1

REPORT INFORMATION
  Report Type: Spontaneous
  Country: US (occurrence: None)
  Receive Date: 20140331
  Receipt Date: 20140331
  Transmission Date: 20141002
  Serious: Yes (Hospitalization, Other)
  Sender: FDA-Public Use
  Company Number: ADR-2014-00207

PATIENT
  Age: 58 Year
  Sex: Male

DRUGS (9)
  1. BACLOFEN [Suspect]
     Indication: MUSCLE SPASTICITY
  2. MORPHINE [Suspect]
     Indication: MUSCLE SPASTICITY
     Dosage: DAY
  3. CLONIDINE [Suspect]
     Dosage: DAY
  4. CYMBALTA [Suspect]
  5. ZOCOR [Suspect]
  6. DIAZEPAM [Suspect]
  7. RESTORIL [Suspect]
  8. LASIX [Suspect]
  9. DOCUSATE [Suspect]

REACTIONS (15)
  - Device connection issue [None]
  - Device damage [None]
  - Overdose [None]
  - Somnolence [None]
  - Respiratory disorder [None]
  - Dyspnoea [None]
  - Complication of device removal [None]
  - Drug tolerance [None]
  - Muscle spasticity [None]
  - Logorrhoea [None]
  - Aggression [None]
  - Staring [None]
  - Hypertension [None]
  - Nystagmus [None]
  - Device breakage [None]
